FAERS Safety Report 20899435 (Version 1)
Quarter: 2022Q2

REPORT INFORMATION
  Report Type: Spontaneous
  Country: CN (occurrence: CN)
  Receive Date: 20220601
  Receipt Date: 20220601
  Transmission Date: 20220721
  Serious: Yes (Hospitalization, Other)
  Sender: FDA-Public Use
  Company Number: None

PATIENT
  Age: 30 Year
  Sex: Male
  Weight: 79 kg

DRUGS (12)
  1. IFOSFAMIDE [Suspect]
     Active Substance: IFOSFAMIDE
     Indication: Ewing^s sarcoma
     Dosage: 3.000000G ONCE DAILY,INJECTION,IFOSFAMIDE 3.5 G + NS 500 ML
     Route: 041
     Dates: start: 20211230, end: 20220103
  2. IFOSFAMIDE [Suspect]
     Active Substance: IFOSFAMIDE
     Dosage: UNK,INJECTION,DOSE REINTRODUCED FOR IFOSFAMIDE + NS
     Route: 041
  3. SODIUM CHLORIDE [Suspect]
     Active Substance: SODIUM CHLORIDE
     Indication: Medication dilution
     Dosage: 500 ML, QD,IFOSFAMIDE 3.5 G + NS 500 ML
     Route: 041
     Dates: start: 20211230, end: 20220103
  4. SODIUM CHLORIDE [Suspect]
     Active Substance: SODIUM CHLORIDE
     Dosage: 500 ML , QD,VP-16 (ETOPOSIDE) 100MG + NS500ML
     Route: 041
     Dates: start: 20211230, end: 20220103
  5. SODIUM CHLORIDE [Suspect]
     Active Substance: SODIUM CHLORIDE
     Dosage: 500 ML , QD,VP-16 (ETOPOSIDE) 95MG + NS500ML
     Route: 041
     Dates: start: 20211230, end: 20220103
  6. SODIUM CHLORIDE [Suspect]
     Active Substance: SODIUM CHLORIDE
     Dosage: DOSE REINTRODUCED FOR IFOSFAMIDE + NS
     Route: 041
  7. SODIUM CHLORIDE [Suspect]
     Active Substance: SODIUM CHLORIDE
     Dosage: DOSE REINTRODUCED FOR VP-16 (ETOPOSIDE)+ NS
     Route: 041
  8. SODIUM CHLORIDE [Suspect]
     Active Substance: SODIUM CHLORIDE
     Dosage: DOSE REINTRODUCED FOR VP-16 (ETOPOSIDE) + NS
     Route: 041
  9. ETOPOSIDE [Suspect]
     Active Substance: ETOPOSIDE
     Indication: Ewing^s sarcoma
     Dosage: 100 MG, QD, VP-16 100MG + NS500ML
     Route: 041
     Dates: start: 20211230, end: 20220103
  10. ETOPOSIDE [Suspect]
     Active Substance: ETOPOSIDE
     Dosage: 95 MG, QD, VP-16 (ETOPOSIDE) 95MG + NS500ML
     Route: 041
     Dates: start: 20211230, end: 20220103
  11. ETOPOSIDE [Suspect]
     Active Substance: ETOPOSIDE
     Dosage: DOSE REINTRODUCED FOR VP-16  + NS
     Route: 041
     Dates: end: 20220103
  12. ETOPOSIDE [Suspect]
     Active Substance: ETOPOSIDE
     Dosage: DOSE REINTRODUCED FOR VP-16 (ETOPOSIDE) + NS
     Route: 041

REACTIONS (1)
  - Myelosuppression [Recovering/Resolving]

NARRATIVE: CASE EVENT DATE: 20220111
